FAERS Safety Report 4534875-2 (Version None)
Quarter: 2004Q4

REPORT INFORMATION
  Report Type: 
  Country: None (occurrence: None)
  Receive Date: 20041222
  Receipt Date: 20040524
  Transmission Date: 20050328
  Serious: No
  Sender: FDA-Public Use
  Company Number: US-BRISTOL-MYERS SQUIBB COMPANY-12595278

PATIENT
  Age: 83 Year
  Sex: Female
  Weight: 59 kg

DRUGS (3)
  1. PRAVACHOL [Suspect]
     Indication: BLOOD CHOLESTEROL INCREASED
     Dosage: DURATION = ^4 TO 5 YEARS^
     Route: 048
  2. LEVOXYL [Concomitant]
  3. ACTONEL [Concomitant]

REACTIONS (2)
  - BURSITIS [None]
  - MENISCUS LESION [None]
